FAERS Safety Report 6033524-4 (Version None)
Quarter: 2009Q1

REPORT INFORMATION
  Report Type: 
  Country: None (occurrence: None)
  Receive Date: 20090109
  Receipt Date: 20081013
  Transmission Date: 20090719
  Serious: Yes (Death)
  Sender: FDA-Public Use
  Company Number: US-GENENTECH-248568

PATIENT
  Sex: Male
  Weight: 85.3 kg

DRUGS (2)
  1. EFALIZUMAB [Suspect]
     Indication: PSORIASIS
     Dosage: 0.8 MG, 1/WEEK
     Route: 058
     Dates: start: 20040323
  2. TOPICAL STEROID NOS [Concomitant]
     Indication: PSORIASIS
     Dosage: UNK, PRN
     Dates: start: 20021219

REACTIONS (1)
  - MYOCARDIAL INFARCTION [None]
